FAERS Safety Report 19579542 (Version 1)
Quarter: 2021Q3

REPORT INFORMATION
  Report Type: Spontaneous
  Country: US (occurrence: US)
  Receive Date: 20210719
  Receipt Date: 20210719
  Transmission Date: 20211014
  Serious: Yes (Other)
  Sender: FDA-Public Use
  Company Number: US-PFIZER INC-2021852945

PATIENT
  Age: 60 Year
  Sex: Female
  Weight: 94.35 kg

DRUGS (2)
  1. ESTRING [Suspect]
     Active Substance: ESTRADIOL
     Indication: VULVOVAGINAL DRYNESS
     Dosage: 1 RING EVERY 12 WEEKS AS DIRECTED
  2. TOZINAMERAN. [Suspect]
     Active Substance: TOZINAMERAN
     Indication: COVID-19 IMMUNISATION
     Dosage: DOSE 2, SINGLE
     Dates: start: 20210226, end: 20210226

REACTIONS (5)
  - Eye inflammation [Recovering/Resolving]
  - Visual impairment [Recovering/Resolving]
  - Intraocular pressure increased [Recovering/Resolving]
  - Eye disorder [Recovering/Resolving]
  - Ocular vascular disorder [Recovering/Resolving]

NARRATIVE: CASE EVENT DATE: 20210529
